FAERS Safety Report 22290202 (Version 1)
Quarter: 2023Q2

REPORT INFORMATION
  Report Type: Spontaneous
  Country: US (occurrence: US)
  Receive Date: 20230505
  Receipt Date: 20230505
  Transmission Date: 20230722
  Serious: No
  Sender: FDA-Public Use
  Company Number: US-ABBVIE-4745921

PATIENT
  Age: 45 Year
  Sex: Female

DRUGS (2)
  1. RINVOQ [Suspect]
     Active Substance: UPADACITINIB
     Indication: Dermatitis atopic
     Dosage: FORM STRENGTH-15 MG, ?FREQUENCY TEXT: 2-3 INTO A DAY
     Route: 048
     Dates: start: 2023
  2. KEFLEX [Concomitant]
     Active Substance: CEPHALEXIN
     Indication: Antibiotic therapy

REACTIONS (1)
  - Intentional product misuse [Unknown]
